FAERS Safety Report 9469623 (Version 1)
Quarter: 2013Q3

REPORT INFORMATION
  Report Type: Report from Study
  Country: DE (occurrence: DE)
  Receive Date: 20130822
  Receipt Date: 20130822
  Transmission Date: 20140515
  Serious: Yes (Hospitalization)
  Sender: FDA-Public Use
  Company Number: DE-ROCHE-1264369

PATIENT
  Age: 67 Year
  Sex: Female
  Weight: 76 kg

DRUGS (4)
  1. BEVACIZUMAB [Suspect]
     Indication: OVARIAN CANCER
     Dosage: DATE OF LAST DOSE BEFORE ONSET OF SAE: 21/FEB/2013
     Route: 042
     Dates: start: 20110113
  2. CARBOPLATIN [Suspect]
     Indication: OVARIAN CANCER
     Dosage: DATE OF LAST DOSE BEFORE ONSET OF SAE: 10/APR/2012
     Route: 042
     Dates: start: 20111223
  3. PACLITAXEL [Suspect]
     Indication: OVARIAN CANCER
     Dosage: DATE OF LAST DOSE BEFORE ONSET OF SAE: 10/APR/2012
     Route: 042
     Dates: start: 20111223
  4. PANTOPRAZOL [Concomitant]
     Route: 065
     Dates: start: 20100801

REACTIONS (1)
  - Gastrooesophageal reflux disease [Recovered/Resolved]
